FAERS Safety Report 23964525 (Version 1)
Quarter: 2024Q2

REPORT INFORMATION
  Report Type: Spontaneous
  Country: US (occurrence: None)
  Receive Date: 20240611
  Receipt Date: 20240611
  Transmission Date: 20240716
  Serious: Yes (Disabling)
  Sender: FDA-Public Use
  Company Number: None

PATIENT
  Age: 39 Year
  Sex: Female
  Weight: 67.5 kg

DRUGS (6)
  1. ACETAMINOPHEN\OXYCODONE HYDROCHLORIDE [Suspect]
     Active Substance: ACETAMINOPHEN\OXYCODONE HYDROCHLORIDE
     Indication: Victim of crime
     Dosage: FREQUENCY : DAILY?OTHER ROUTE : ORALLY?
     Route: 048
     Dates: start: 20240224, end: 20240304
  2. ACETAMINOPHEN\OXYCODONE HYDROCHLORIDE [Suspect]
     Active Substance: ACETAMINOPHEN\OXYCODONE HYDROCHLORIDE
     Indication: Head injury
  3. ACETAMINOPHEN\OXYCODONE HYDROCHLORIDE [Suspect]
     Active Substance: ACETAMINOPHEN\OXYCODONE HYDROCHLORIDE
     Indication: Pain management
  4. MINERAL DROPS [Concomitant]
  5. HAWTHORN TEA [Concomitant]
  6. DIETARY SUPPLEMENT\HERBALS\MILK THISTLE [Concomitant]
     Active Substance: MILK THISTLE

REACTIONS (7)
  - Urticaria [None]
  - Erythema [None]
  - Mast cell activation syndrome [None]
  - Histamine intolerance [None]
  - Physical assault [None]
  - Quality of life decreased [None]
  - Physical assault [None]

NARRATIVE: CASE EVENT DATE: 20240304
